FAERS Safety Report 14492144 (Version 1)
Quarter: 2018Q1

REPORT INFORMATION
  Report Type: Spontaneous
  Country: CN (occurrence: CN)
  Receive Date: 20180206
  Receipt Date: 20180206
  Transmission Date: 20180509
  Serious: Yes (Other)
  Sender: FDA-Public Use
  Company Number: CN-ASTRAZENECA-2018SE14940

PATIENT
  Sex: Male
  Weight: 18 kg

DRUGS (2)
  1. BUDESONIDE. [Suspect]
     Active Substance: BUDESONIDE
     Indication: BRONCHITIS
     Route: 055
     Dates: start: 20171112, end: 20171114
  2. IPRATROPIUM BROMIDE. [Suspect]
     Active Substance: IPRATROPIUM BROMIDE
     Indication: BRONCHITIS
     Route: 065

REACTIONS (1)
  - Osteomyelitis [Recovered/Resolved]
